FAERS Safety Report 24177334 (Version 1)
Quarter: 2024Q3

REPORT INFORMATION
  Report Type: Report from Study
  Country: US (occurrence: US)
  Receive Date: 20240806
  Receipt Date: 20240806
  Transmission Date: 20241016
  Serious: Yes (Other)
  Sender: ABBVIE
  Company Number: US-ABBVIE-5865942

PATIENT
  Age: 60 Year
  Sex: Male

DRUGS (3)
  1. HUMIRA [Suspect]
     Active Substance: ADALIMUMAB
     Indication: Bronchitis
     Route: 058
     Dates: start: 20230912, end: 20230912
  2. HUMIRA [Suspect]
     Active Substance: ADALIMUMAB
     Indication: Pneumonia
  3. LYRICA [Concomitant]
     Active Substance: PREGABALIN
     Indication: Nerve injury

REACTIONS (4)
  - Pulmonary thrombosis [Recovered/Resolved with Sequelae]
  - Bronchitis [Unknown]
  - Haemoptysis [Recovered/Resolved with Sequelae]
  - Pneumonia [Unknown]

NARRATIVE: CASE EVENT DATE: 20231228
